FAERS Safety Report 13334709 (Version 1)
Quarter: 2017Q1

REPORT INFORMATION
  Report Type: Spontaneous
  Country: AU (occurrence: AU)
  Receive Date: 20170314
  Receipt Date: 20170314
  Transmission Date: 20170428
  Serious: Yes (Other)
  Sender: FDA-Public Use
  Company Number: AU-ASTRAZENECA-2017SE25213

PATIENT
  Age: 75 Year
  Sex: Female

DRUGS (6)
  1. LYNPARZA [Suspect]
     Active Substance: OLAPARIB
     Route: 048
     Dates: start: 201609, end: 201609
  2. LYNPARZA [Suspect]
     Active Substance: OLAPARIB
     Route: 048
     Dates: start: 201611
  3. TAMOXIFEN CITRATE. [Suspect]
     Active Substance: TAMOXIFEN CITRATE
     Route: 048
     Dates: start: 201401, end: 201511
  4. TAXOL [Concomitant]
     Active Substance: PACLITAXEL
  5. ARIMIDEX [Suspect]
     Active Substance: ANASTROZOLE
     Route: 048
  6. LYNPARZA [Suspect]
     Active Substance: OLAPARIB
     Route: 048
     Dates: start: 201606, end: 201608

REACTIONS (7)
  - Viral infection [Unknown]
  - Haemoglobin decreased [Unknown]
  - Malignant neoplasm progression [Unknown]
  - Pyrexia [Unknown]
  - Stoma site discomfort [Unknown]
  - Nausea [Unknown]
  - Pollakiuria [Unknown]

NARRATIVE: CASE EVENT DATE: 201608
